FAERS Safety Report 18693553 (Version 1)
Quarter: 2021Q1

REPORT INFORMATION
  Report Type: Spontaneous
  Country: US (occurrence: US)
  Receive Date: 20210104
  Receipt Date: 20210104
  Transmission Date: 20210419
  Serious: Yes (Life-Threatening, Hospitalization)
  Sender: FDA-Public Use
  Company Number: US-CELLTRION INC.-2020US034691

PATIENT

DRUGS (2)
  1. RITUXIMAB (UNKNOWN) [Suspect]
     Active Substance: RITUXIMAB
     Indication: RHEUMATOID ARTHRITIS
     Dosage: UNK, EVERY 6 MONTHS
     Dates: start: 2008
  2. METHOTREXATE. [Suspect]
     Active Substance: METHOTREXATE
     Indication: RHEUMATOID ARTHRITIS
     Dosage: UNK. WEEKLY
     Dates: start: 2008

REACTIONS (3)
  - COVID-19 [Recovered/Resolved]
  - Acute respiratory distress syndrome [Unknown]
  - Humoral immune defect [Unknown]

NARRATIVE: CASE EVENT DATE: 2017
